FAERS Safety Report 8348078-7 (Version None)
Quarter: 2012Q2

REPORT INFORMATION
  Report Type: 
  Country: None (occurrence: None)
  Receive Date: 20120509
  Receipt Date: 20120501
  Transmission Date: 20120825
  Serious: Yes (Hospitalization)
  Sender: FDA-Public Use
  Company Number: US-JNJFOC-20110700106

PATIENT
  Age: 87 Year
  Sex: Male
  Weight: 63.5 kg

DRUGS (3)
  1. TYLENOL-500 [Suspect]
     Indication: ARTHRALGIA
     Route: 048
     Dates: start: 20110617
  2. TYLENOL-500 [Suspect]
     Dosage: STARTED TAKING IN 2001 OR 2002
     Route: 048
     Dates: end: 20110601
  3. TYLENOL-500 [Suspect]
     Route: 048
     Dates: start: 20110624, end: 20110624

REACTIONS (3)
  - NAUSEA [None]
  - DIZZINESS [None]
  - FATIGUE [None]
